FAERS Safety Report 5804059-6 (Version None)
Quarter: 2008Q3

REPORT INFORMATION
  Report Type: 
  Country: None (occurrence: None)
  Receive Date: 20080707
  Receipt Date: 20080707
  Transmission Date: 20090109
  Serious: Yes (Disabling)
  Sender: FDA-Public Use
  Company Number: None

PATIENT
  Age: 55 Year
  Sex: Female

DRUGS (12)
  1. FOSAMAX [Suspect]
     Indication: OSTEOPENIA
     Dosage: 70 MG WEEKLY ORAL
     Route: 048
     Dates: start: 20030201, end: 20071101
  2. COREG [Concomitant]
  3. PLAVIX [Concomitant]
  4. NEXIUM [Concomitant]
  5. ASPIRIN [Concomitant]
  6. FOSINOPRIL SODIUM [Concomitant]
  7. CREON [Concomitant]
  8. LORAZEPAM [Concomitant]
  9. AMBIEN [Concomitant]
  10. ADVAIR DISKUS 100/50 [Concomitant]
  11. NORVASC [Concomitant]
  12. NITRO QUIK [Concomitant]

REACTIONS (1)
  - BONE DISORDER [None]
